FAERS Safety Report 5943575-3 (Version None)
Quarter: 2008Q4

REPORT INFORMATION
  Report Type: 
  Country: None (occurrence: None)
  Receive Date: 20081106
  Receipt Date: 20081104
  Transmission Date: 20090506
  Serious: Yes (Death)
  Sender: FDA-Public Use
  Company Number: PHHY2008JP09152

PATIENT
  Age: 61 Year
  Sex: Male
  Weight: 39 kg

DRUGS (9)
  1. DESFERAL [Suspect]
     Indication: IRON OVERLOAD
     Dosage: 1000 MG/DAY
     Route: 030
     Dates: start: 20080424, end: 20080425
  2. DESFERAL [Suspect]
     Indication: HAEMOSIDEROSIS
  3. FAMOTIDINE [Concomitant]
     Indication: GASTRIC ULCER
     Dosage: 20 MG
     Route: 048
     Dates: start: 20060128, end: 20080426
  4. GLYCERON TAB [Concomitant]
     Indication: LIVER DISORDER
     Dosage: 6 DF
     Route: 048
     Dates: start: 20071003, end: 20080426
  5. URSO 250 [Concomitant]
     Indication: LIVER DISORDER
     Dosage: 600 MG
     Route: 048
     Dates: start: 20071024, end: 20080426
  6. LEVOTHYROXINE SODIUM [Concomitant]
     Indication: HYPOTHYROIDISM
     Dosage: 25 MG
     Route: 048
     Dates: start: 20080129, end: 20080426
  7. CRAVIT [Concomitant]
     Indication: BACTERIAL INFECTION
     Dosage: 300 MG
     Route: 048
     Dates: start: 20080130, end: 20080426
  8. DIFLUCAN [Concomitant]
     Dosage: 200 MG
     Route: 048
     Dates: start: 20080213, end: 20080426
  9. PREDONINE [Concomitant]
     Indication: GRAFT VERSUS HOST DISEASE
     Dosage: 10 MG
     Route: 048
     Dates: start: 20061230, end: 20080426

REACTIONS (30)
  - ABDOMINAL PAIN UPPER [None]
  - ABDOMINAL WALL HAEMORRHAGE [None]
  - ALANINE AMINOTRANSFERASE INCREASED [None]
  - ASPARTATE AMINOTRANSFERASE INCREASED [None]
  - BLOOD ALKALINE PHOSPHATASE INCREASED [None]
  - BLOOD AMYLASE INCREASED [None]
  - BLOOD BILIRUBIN INCREASED [None]
  - BLOOD CREATININE INCREASED [None]
  - BLOOD GLUCOSE INCREASED [None]
  - BLOOD LACTATE DEHYDROGENASE INCREASED [None]
  - BLOOD POTASSIUM DECREASED [None]
  - BLOOD PRESSURE ABNORMAL [None]
  - BLOOD UREA INCREASED [None]
  - CHEST PAIN [None]
  - CHEST X-RAY ABNORMAL [None]
  - DISSEMINATED INTRAVASCULAR COAGULATION [None]
  - ELECTROCARDIOGRAM ABNORMAL [None]
  - GAMMA-GLUTAMYLTRANSFERASE INCREASED [None]
  - HAEMATOCRIT DECREASED [None]
  - LIVER DISORDER [None]
  - LYMPHOCYTE COUNT DECREASED [None]
  - MALAISE [None]
  - NEUTROPHIL COUNT INCREASED [None]
  - PANCREATITIS ACUTE [None]
  - PLATELET COUNT DECREASED [None]
  - PLEURISY [None]
  - PROTEIN URINE PRESENT [None]
  - PROTHROMBIN TIME PROLONGED [None]
  - PULSE ABSENT [None]
  - VOMITING [None]
